FAERS Safety Report 18430301 (Version 2)
Quarter: 2021Q2

REPORT INFORMATION
  Report Type: Spontaneous
  Country: JP (occurrence: JP)
  Receive Date: 20201027
  Receipt Date: 20210407
  Transmission Date: 20210717
  Serious: Yes (Hospitalization, Other)
  Sender: FDA-Public Use
  Company Number: JP-AUROBINDO-AUR-APL-2020-053960

PATIENT
  Age: 68 Year
  Sex: Male

DRUGS (17)
  1. MELPHALAN. [Suspect]
     Active Substance: MELPHALAN
     Indication: CORD BLOOD TRANSPLANT THERAPY
  2. FLUDARABINE [Suspect]
     Active Substance: FLUDARABINE PHOSPHATE
     Indication: T-CELL TYPE ACUTE LEUKAEMIA
     Dosage: 90 MG/M2, ONCE A DAY
     Route: 065
  3. MICAFUNGIN. [Suspect]
     Active Substance: MICAFUNGIN SODIUM
     Indication: T-CELL TYPE ACUTE LEUKAEMIA
     Dosage: 150 GRAM/DAY
     Route: 065
  4. MEROPENEM. [Concomitant]
     Active Substance: MEROPENEM
     Indication: FEBRILE NEUTROPENIA
     Dosage: UNK
     Route: 065
  5. VANCOMYCIN [Concomitant]
     Active Substance: VANCOMYCIN
     Indication: FEBRILE NEUTROPENIA
     Dosage: 500 MILLIGRAM/DAY
     Route: 048
  6. FLUCONAZOLE. [Suspect]
     Active Substance: FLUCONAZOLE
     Indication: ANTIFUNGAL PROPHYLAXIS
     Dosage: 200 MILLIGRAM, ONCE A DAY
     Route: 065
  7. MYCOPHENOLATE MOFETIL. [Suspect]
     Active Substance: MYCOPHENOLATE MOFETIL
     Indication: GRAFT VERSUS HOST DISEASE
     Dosage: UNK
     Route: 065
  8. TOSUFLOXACIN [Concomitant]
     Active Substance: TOSUFLOXACIN TOSYLATE
     Indication: ANTIFUNGAL PROPHYLAXIS
     Dosage: 450 MILLIGRAM/DAY
     Route: 065
  9. VORICONAZOLE. [Concomitant]
     Active Substance: VORICONAZOLE
     Indication: ANTIFUNGAL PROPHYLAXIS
     Dosage: 400 MILLIGRAM/DAY
     Route: 048
  10. GANCICLOVIR. [Concomitant]
     Active Substance: GANCICLOVIR
     Indication: CYTOMEGALOVIRUS INFECTION REACTIVATION
     Dosage: UNK
     Route: 065
  11. FLUCONAZOLE. [Concomitant]
     Active Substance: FLUCONAZOLE
     Indication: ANTIFUNGAL PROPHYLAXIS
     Dosage: 200 MILLIGRAM/DAY
     Route: 048
  12. MICAFUNGIN. [Suspect]
     Active Substance: MICAFUNGIN SODIUM
     Indication: ANTIFUNGAL TREATMENT
     Dosage: 150 MG, DAILY, FROM DAY 7
     Route: 065
  13. TOSUFLOXACIN [Concomitant]
     Active Substance: TOSUFLOXACIN TOSYLATE
     Indication: ANTIBIOTIC PROPHYLAXIS
  14. VANCOMYCIN [Concomitant]
     Active Substance: VANCOMYCIN
     Indication: ANTIBIOTIC PROPHYLAXIS
     Dosage: UNK
     Route: 042
  15. MELPHALAN. [Suspect]
     Active Substance: MELPHALAN
     Indication: T-CELL TYPE ACUTE LEUKAEMIA
     Dosage: 140 MG/M2, ONCE A DAY
     Route: 065
  16. CICLOSPORIN [Suspect]
     Active Substance: CYCLOSPORINE
     Indication: GRAFT VERSUS HOST DISEASE
     Dosage: UNK
     Route: 065
  17. FLUDARABINE [Suspect]
     Active Substance: FLUDARABINE PHOSPHATE
     Indication: CORD BLOOD TRANSPLANT THERAPY

REACTIONS (8)
  - Drug resistance [Recovered/Resolved]
  - Infection [Unknown]
  - Febrile neutropenia [Unknown]
  - Gene mutation [Unknown]
  - Prescribed overdose [Unknown]
  - Systemic candida [Recovered/Resolved]
  - Drug ineffective [Unknown]
  - Hepatotoxicity [Unknown]
